FAERS Safety Report 8296225-8 (Version None)
Quarter: 2012Q2

REPORT INFORMATION
  Report Type: 
  Country: None (occurrence: None)
  Receive Date: 20120418
  Receipt Date: 20120409
  Transmission Date: 20120825
  Serious: Yes (Hospitalization)
  Sender: FDA-Public Use
  Company Number: PHHY2012JP030834

PATIENT
  Age: 37 Year
  Sex: Male

DRUGS (3)
  1. CYCLOSPORINE [Suspect]
     Indication: APLASTIC ANAEMIA
  2. METENOLONE ACETATE [Concomitant]
     Indication: APLASTIC ANAEMIA
  3. PREDNISOLONE [Concomitant]
     Indication: APLASTIC ANAEMIA

REACTIONS (2)
  - AORTIC ANEURYSM [None]
  - ARTERIOSCLEROSIS [None]
